FAERS Safety Report 12126231 (Version 1)
Quarter: 2016Q1

REPORT INFORMATION
  Report Type: Spontaneous
  Country: CA (occurrence: CA)
  Receive Date: 20160229
  Receipt Date: 20160229
  Transmission Date: 20160526
  Serious: Yes (Hospitalization)
  Sender: FDA-Public Use
  Company Number: CA-009507513-1602CAN010951

PATIENT
  Age: 47 Year
  Sex: Female

DRUGS (3)
  1. PHENOBARBITAL. [Concomitant]
     Active Substance: PHENOBARBITAL
     Dosage: UNK
  2. PHENYTOIN. [Concomitant]
     Active Substance: PHENYTOIN
     Dosage: UNK
  3. KEYTRUDA [Suspect]
     Active Substance: PEMBROLIZUMAB
     Dosage: 100 MG, ONCE
     Route: 042

REACTIONS (4)
  - Rash maculo-papular [Recovering/Resolving]
  - Eosinophil count normal [Recovering/Resolving]
  - Drug reaction with eosinophilia and systemic symptoms [Recovering/Resolving]
  - Pyrexia [Recovering/Resolving]
